FAERS Safety Report 6674272-7 (Version None)
Quarter: 2010Q2

REPORT INFORMATION
  Report Type: 
  Country: None (occurrence: None)
  Receive Date: 20100409
  Receipt Date: 20100330
  Transmission Date: 20101027
  Serious: Yes (Death, Hospitalization)
  Sender: FDA-Public Use
  Company Number: GR-JNJFOC-20100301934

PATIENT
  Sex: Male
  Weight: 75 kg

DRUGS (17)
  1. PREZISTA [Suspect]
     Indication: HIV INFECTION
     Route: 048
  2. RITONAVIR [Concomitant]
     Indication: HIV INFECTION
  3. STAVUDINE [Concomitant]
     Indication: HIV INFECTION
     Route: 048
  4. ISENTRESS [Concomitant]
     Indication: HIV INFECTION
  5. RISPERDAL [Concomitant]
     Indication: DRUG USE FOR UNKNOWN INDICATION
     Route: 048
  6. AKINETON [Concomitant]
     Indication: DRUG USE FOR UNKNOWN INDICATION
  7. ARANESP [Concomitant]
     Indication: DRUG USE FOR UNKNOWN INDICATION
  8. ALBUMIN (HUMAN) [Concomitant]
     Indication: DRUG USE FOR UNKNOWN INDICATION
  9. APOTEL [Concomitant]
     Indication: DRUG USE FOR UNKNOWN INDICATION
  10. MEROPENEM [Concomitant]
     Indication: DRUG USE FOR UNKNOWN INDICATION
  11. NAPROSYN [Concomitant]
     Indication: DRUG USE FOR UNKNOWN INDICATION
  12. GRANULOKINE [Concomitant]
     Indication: DRUG USE FOR UNKNOWN INDICATION
  13. ALLOPURINOL [Concomitant]
     Indication: DRUG USE FOR UNKNOWN INDICATION
  14. FUNGISTATIN [Concomitant]
     Indication: DRUG USE FOR UNKNOWN INDICATION
  15. CLINDAMYCIN [Concomitant]
     Indication: DRUG USE FOR UNKNOWN INDICATION
  16. BEROVENT [Concomitant]
     Indication: DRUG USE FOR UNKNOWN INDICATION
  17. BISOLVON [Concomitant]
     Indication: DRUG USE FOR UNKNOWN INDICATION

REACTIONS (4)
  - ANAEMIA [None]
  - LYMPHOMA [None]
  - PANCYTOPENIA [None]
  - SEPSIS [None]
